FAERS Safety Report 21678243 (Version 1)
Quarter: 2022Q4

REPORT INFORMATION
  Report Type: Spontaneous
  Country: DE (occurrence: DE)
  Receive Date: 20221203
  Receipt Date: 20221203
  Transmission Date: 20230113
  Serious: Yes (Hospitalization)
  Sender: FDA-Public Use
  Company Number: None

PATIENT
  Age: 73 Year
  Sex: Female
  Weight: 95 kg

DRUGS (13)
  1. METHOTREXATE [Suspect]
     Active Substance: METHOTREXATE
     Indication: Product used for unknown indication
     Dosage: SCHEME
  2. METFORMIN [Concomitant]
     Active Substance: METFORMIN HYDROCHLORIDE
     Dosage: 1000 MG, 1-0-1-0
  3. MOXONIDINE [Concomitant]
     Active Substance: MOXONIDINE
     Dosage: 0.2 MG, 1-0-1-0
  4. CARVEDILOL [Concomitant]
     Active Substance: CARVEDILOL
     Dosage: 12.5 MG, 1-0-1-0
  5. PANTOPRAZOLE SODIUM [Concomitant]
     Active Substance: PANTOPRAZOLE SODIUM
     Dosage: 40 MG, 1-0-0-0
  6. TILIDINE [Concomitant]
     Active Substance: TILIDINE
     Dosage: 50 MG, 0-0-1-0
  7. ATORVASTATIN [Concomitant]
     Active Substance: ATORVASTATIN
     Dosage: 40 MG, 0-0-1-0
  8. APIXABAN [Concomitant]
     Active Substance: APIXABAN
     Dosage: 30 MG, 1-0-0-0
  9. CHOLECALCIFEROL [Concomitant]
     Active Substance: CHOLECALCIFEROL
     Dosage: SCHEME
  10. CANDESARTAN CILEXETIL AND HYDROCHLOROTHIAZIDE [Concomitant]
     Active Substance: CANDESARTAN CILEXETIL\HYDROCHLOROTHIAZIDE
     Dosage: 32 12.5 MG, 1-0-0-0
  11. HUMALOG MIX50/50 [Concomitant]
     Active Substance: INSULIN LISPRO
     Dosage: 56-0-36-0
  12. TORSEMIDE [Concomitant]
     Active Substance: TORSEMIDE
     Dosage: 10 MG, 1-0-0-0
  13. CELECOXIB [Concomitant]
     Active Substance: CELECOXIB
     Dosage: 100 MG, 1-0-0-0

REACTIONS (10)
  - General physical health deterioration [Unknown]
  - Postrenal failure [Unknown]
  - Urinary tract infection [Unknown]
  - Abdominal pain [Unknown]
  - Flank pain [Unknown]
  - Calculus urinary [Unknown]
  - Weight increased [Unknown]
  - Candida infection [Unknown]
  - Renal colic [Unknown]
  - Renal impairment [Unknown]
